FAERS Safety Report 4394933-2 (Version None)
Quarter: 2004Q3

REPORT INFORMATION
  Report Type: 
  Country: None (occurrence: None)
  Receive Date: 20040712
  Receipt Date: 20040527
  Transmission Date: 20050211
  Serious: Yes (Hospitalization)
  Sender: FDA-Public Use
  Company Number: JP-GLAXOSMITHKLINE-B0334180A

PATIENT
  Age: 77 Year
  Sex: Male

DRUGS (9)
  1. PAXIL [Suspect]
     Indication: DEPRESSION
     Route: 048
     Dates: start: 20030825, end: 20040120
  2. BISOLVON [Concomitant]
     Indication: BRONCHITIS CHRONIC
     Dosage: 12MG PER DAY
     Route: 048
     Dates: start: 20031208
  3. LENDORM [Concomitant]
     Indication: INSOMNIA
     Dosage: .25MG PER DAY
     Route: 048
     Dates: start: 20030825, end: 20031001
  4. AMOBAN [Concomitant]
     Indication: INSOMNIA
     Dosage: 7.5MG PER DAY
     Route: 048
     Dates: start: 20031010, end: 20040401
  5. LORAZEPAM [Concomitant]
     Dosage: .5MG PER DAY
     Route: 048
     Dates: start: 20031010, end: 20031205
  6. SYMMETREL [Concomitant]
     Indication: PARKINSONISM
     Dosage: 20MG PER DAY
     Route: 048
     Dates: start: 20031010, end: 20031031
  7. NEODOPASTON [Concomitant]
     Indication: PARKINSONISM
     Dosage: 200MG PER DAY
     Route: 048
     Dates: start: 20031110, end: 20040401
  8. UNSPECIFIED DRUGS [Concomitant]
     Indication: PARKINSONISM
     Route: 048
     Dates: end: 20040401
  9. ANTIBIOTICS [Concomitant]
     Route: 065

REACTIONS (9)
  - BLOOD CHLORIDE DECREASED [None]
  - BRONCHITIS ACUTE [None]
  - DEPRESSED LEVEL OF CONSCIOUSNESS [None]
  - DIFFICULTY IN WALKING [None]
  - FALL [None]
  - HYPONATRAEMIA [None]
  - INAPPROPRIATE ANTIDIURETIC HORMONE SECRETION [None]
  - PYREXIA [None]
  - SOMNOLENCE [None]
